FAERS Safety Report 4995331-0 (Version None)
Quarter: 2006Q2

REPORT INFORMATION
  Report Type: 
  Country: None (occurrence: None)
  Receive Date: 20060508
  Receipt Date: 20060314
  Transmission Date: 20061013
  Serious: Yes (Hospitalization)
  Sender: FDA-Public Use
  Company Number: CG-MERCK-0604USA02964

PATIENT
  Age: 21 Year
  Sex: Male

DRUGS (1)
  1. STROMECTOL [Suspect]
     Route: 048
     Dates: start: 20060228, end: 20060228

REACTIONS (4)
  - ASTHENIA [None]
  - OCULAR HYPERAEMIA [None]
  - PAIN [None]
  - VERTIGO [None]
